FAERS Safety Report 25855661 (Version 1)
Quarter: 2025Q3

REPORT INFORMATION
  Report Type: Report from Study
  Country: CA (occurrence: CA)
  Receive Date: 20250927
  Receipt Date: 20250927
  Transmission Date: 20251021
  Serious: Yes (Hospitalization)
  Sender: JOHNSON AND JOHNSON
  Company Number: CA-JNJFOC-20250936068

PATIENT
  Sex: Female

DRUGS (2)
  1. REMICADE [Suspect]
     Active Substance: INFLIXIMAB
     Indication: Crohn^s disease
     Route: 041
  2. GLYCYRRHIZA GLABRA\HERBALS [Suspect]
     Active Substance: GLYCYRRHIZA GLABRA\HERBALS

REACTIONS (5)
  - Pyrexia [Recovering/Resolving]
  - Nausea [Recovering/Resolving]
  - Vomiting [Recovering/Resolving]
  - Erythema [Recovering/Resolving]
  - Fixed eruption [Recovering/Resolving]
